FAERS Safety Report 4474304-0 (Version None)
Quarter: 2004Q4

REPORT INFORMATION
  Report Type: 
  Country: None (occurrence: None)
  Receive Date: 20041008
  Receipt Date: 20040929
  Transmission Date: 20050328
  Serious: Yes (Hospitalization)
  Sender: FDA-Public Use
  Company Number: 2004UW20543

PATIENT
  Sex: Male

DRUGS (2)
  1. SEROQUEL [Suspect]
  2. BUSPAR [Suspect]

REACTIONS (2)
  - ADVERSE EVENT [None]
  - DRUG INTERACTION [None]
